FAERS Safety Report 8394390-5 (Version None)
Quarter: 2012Q2

REPORT INFORMATION
  Report Type: 
  Country: None (occurrence: None)
  Receive Date: 20120525
  Receipt Date: 20120525
  Transmission Date: 20120825
  Serious: Yes (Hospitalization)
  Sender: FDA-Public Use
  Company Number: None

PATIENT
  Age: 41 Year
  Sex: Male

DRUGS (2)
  1. NEURONTIN [Suspect]
     Indication: ANXIETY
     Dosage: 800 MG TID PO
     Route: 048
     Dates: start: 20110101, end: 20120101
  2. NEURONTIN [Suspect]
     Indication: AFFECTIVE DISORDER
     Dosage: 800 MG TID PO
     Route: 048
     Dates: start: 20110101, end: 20120101

REACTIONS (1)
  - UNRESPONSIVE TO STIMULI [None]
